FAERS Safety Report 21647892 (Version 1)
Quarter: 2022Q4

REPORT INFORMATION
  Report Type: Report from Study
  Country: BR (occurrence: BR)
  Receive Date: 20221128
  Receipt Date: 20221128
  Transmission Date: 20230113
  Serious: Yes (Other)
  Sender: FDA-Public Use
  Company Number: BR-CELLTRION INC.-2022BR019925

PATIENT

DRUGS (7)
  1. INFLIXIMAB [Suspect]
     Active Substance: INFLIXIMAB
     Indication: Rheumatoid arthritis
     Dosage: 3 AMPOULES EVERY 4 WEEKS
     Route: 042
     Dates: start: 202208, end: 20220930
  2. INFLIXIMAB [Suspect]
     Active Substance: INFLIXIMAB
     Indication: Psoriasis
  3. INFLIXIMAB [Suspect]
     Active Substance: INFLIXIMAB
     Indication: Fibromyalgia
  4. PREDNISONE [Concomitant]
     Active Substance: PREDNISONE
     Indication: Pain
     Dosage: 1 PILL A DAY (START: 18 YEARS AGO)
     Route: 048
  5. METHOTREXATE [Concomitant]
     Active Substance: METHOTREXATE
     Indication: Arthritis
     Dosage: 8 PILLS PER WEEK (START: 18 YEARS AGO)
     Route: 048
  6. CYCLOBENZAPRINE [Concomitant]
     Active Substance: CYCLOBENZAPRINE
     Indication: Fibromyalgia
     Dosage: 1 PILL A DAY (START: 18 YEARS AGO)
     Route: 048
  7. DULOXETINE HYDROCHLORIDE [Concomitant]
     Active Substance: DULOXETINE HYDROCHLORIDE
     Dosage: 1 PILL A DAY (START: 5 YEARS AGO)
     Route: 048

REACTIONS (4)
  - Blindness [Unknown]
  - Eye operation [Unknown]
  - Intentional dose omission [Unknown]
  - Off label use [Unknown]
